FAERS Safety Report 13957552 (Version 1)
Quarter: 2017Q3

REPORT INFORMATION
  Report Type: Spontaneous
  Country: US (occurrence: US)
  Receive Date: 20170911
  Receipt Date: 20170911
  Transmission Date: 20171128
  Serious: No
  Sender: FDA-Public Use
  Company Number: US-ROCHE-1130880

PATIENT
  Sex: Female

DRUGS (5)
  1. RITUXAN [Suspect]
     Active Substance: RITUXIMAB
     Indication: THROMBOCYTOPENIA
     Route: 065
     Dates: start: 200201
  2. RITUXAN [Suspect]
     Active Substance: RITUXIMAB
     Indication: OFF LABEL USE
  3. TYLENOL [Concomitant]
     Active Substance: ACETAMINOPHEN
     Route: 048
  4. IVIG [Concomitant]
     Active Substance: HUMAN IMMUNOGLOBULIN G
     Route: 042
  5. BENADRYL [Concomitant]
     Active Substance: DIPHENHYDRAMINE HYDROCHLORIDE
     Route: 048

REACTIONS (1)
  - Drug ineffective [Unknown]
